FAERS Safety Report 7375167-6 (Version None)
Quarter: 2011Q1

REPORT INFORMATION
  Report Type: 
  Country: None (occurrence: None)
  Receive Date: 20110325
  Receipt Date: 20110322
  Transmission Date: 20110831
  Serious: No
  Sender: FDA-Public Use
  Company Number: US-ROCHE-758091

PATIENT
  Sex: Male
  Weight: 49.9 kg

DRUGS (2)
  1. ACETAMINOPHEN [Concomitant]
  2. TAMIFLU [Suspect]
     Indication: INFLUENZA
     Dosage: STRENGTH: 12MG/ML
     Route: 048
     Dates: start: 20110202, end: 20110204

REACTIONS (2)
  - PRODUCT QUALITY ISSUE [None]
  - PRODUCT TASTE ABNORMAL [None]
